FAERS Safety Report 7548748-4 (Version None)
Quarter: 2011Q2

REPORT INFORMATION
  Report Type: 
  Country: None (occurrence: None)
  Receive Date: 20110608
  Receipt Date: 20110531
  Transmission Date: 20111010
  Serious: Yes (Hospitalization)
  Sender: FDA-Public Use
  Company Number: 1000021269

PATIENT
  Age: 53 Year
  Sex: Female
  Weight: 67.6 kg

DRUGS (11)
  1. LYRICA [Suspect]
     Indication: NEUROPATHY PERIPHERAL
     Dosage: 50 MG BID (50 MQ,2 IN 1 D),ORAL
     Route: 048
     Dates: start: 20100530, end: 20100606
  2. TRAZODONE (TRAZODONE) (TRAZODONE [Concomitant]
  3. SPIRIVA(TIOTROPIUM BROMIDE) (TIOTROPIUM BROMIDE) [Concomitant]
  4. ARTHROTEC [Suspect]
     Indication: ARTHRITIS
     Dosage: 75 MG,ORAL
     Dates: start: 20080101
  5. LYRICA [Suspect]
     Indication: NEUROPATHY PERIPHERAL
     Dosage: 50 MG (50 MG,1 IN 1 D),ORAL
     Route: 048
     Dates: start: 20100530, end: 20100606
  6. CELEXA [Suspect]
     Indication: DEPRESSION
     Dosage: 20 MG (1 IN 1 D)
  7. TOPIRAMATE [Concomitant]
  8. LYRICA [Suspect]
     Indication: NEUROPATHY PERIPHERAL
     Dosage: 100 MG (50 MG, 3 IN 1 D), ORAL
     Route: 048
     Dates: start: 20100504, end: 20100501
  9. NEURONTIN [Suspect]
     Indication: NEUROPATHY PERIPHERAL
     Dosage: 300 MG TID (300 MG,3 IN 1 D),ORAL, 600 MG TID (600 MG, 3 IN 1 D ), ORAL
     Route: 048
     Dates: start: 20100101, end: 20100401
  10. NEURONTIN [Suspect]
     Indication: NEUROPATHY PERIPHERAL
     Dosage: 300 MG TID (300 MG,3 IN 1 D),ORAL, 600 MG TID (600 MG, 3 IN 1 D ), ORAL
     Route: 048
     Dates: start: 20090101, end: 20100101
  11. KLONOPIN (CLONAZEPAM) (CLONAZEPAM) [Concomitant]

REACTIONS (25)
  - SPEECH DISORDER [None]
  - WHEEZING [None]
  - HEART RATE DECREASED [None]
  - PUNCTATE KERATITIS [None]
  - WHITE BLOOD CELL COUNT DECREASED [None]
  - CRYING [None]
  - BLOOD POTASSIUM DECREASED [None]
  - DRUG INTERACTION [None]
  - VISION BLURRED [None]
  - MUSCULOSKELETAL PAIN [None]
  - POTENTIATING DRUG INTERACTION [None]
  - DIARRHOEA [None]
  - ABDOMINAL DISTENSION [None]
  - FEELING DRUNK [None]
  - ANAEMIA [None]
  - OSTEOARTHRITIS [None]
  - HYPOTENSION [None]
  - LYMPHADENOPATHY [None]
  - DIZZINESS [None]
  - AMNESIA [None]
  - SOMNOLENCE [None]
  - OEDEMA PERIPHERAL [None]
  - DEPRESSED MOOD [None]
  - BONE PAIN [None]
  - HEADACHE [None]
